FAERS Safety Report 13545351 (Version 1)
Quarter: 2017Q2

REPORT INFORMATION
  Report Type: Other
  Country: IT (occurrence: IT)
  Receive Date: 20170515
  Receipt Date: 20170515
  Transmission Date: 20170830
  Serious: Yes (Hospitalization)
  Sender: FDA-Public Use
  Company Number: IT-VALIDUS PHARMACEUTICALS LLC-IT-2017VAL000719

PATIENT
  Age: 94 Year
  Sex: Male

DRUGS (4)
  1. UNIPRIL                            /00885601/ [Concomitant]
     Indication: PRODUCT USED FOR UNKNOWN INDICATION
     Dosage: UNK
  2. LANOXIN [Suspect]
     Active Substance: DIGOXIN
     Indication: ANURIA
     Dosage: 1 UNIT(S);DAILY
     Route: 048
     Dates: start: 20160101, end: 20160223
  3. LASIX [Suspect]
     Active Substance: FUROSEMIDE
     Indication: CARDIOMYOPATHY
     Dosage: 1 UNIT(S);DAILY
     Route: 048
     Dates: start: 20170101, end: 20170223
  4. COUMADIN [Concomitant]
     Active Substance: WARFARIN SODIUM
     Indication: PRODUCT USED FOR UNKNOWN INDICATION
     Dosage: UNK

REACTIONS (2)
  - Hypokalaemia [Unknown]
  - Abnormal loss of weight [Unknown]

NARRATIVE: CASE EVENT DATE: 20170223
